FAERS Safety Report 7563004-6 (Version None)
Quarter: 2011Q2

REPORT INFORMATION
  Report Type: 
  Country: None (occurrence: None)
  Receive Date: 20110622
  Receipt Date: 20110511
  Transmission Date: 20111010
  Serious: Yes (Other)
  Sender: FDA-Public Use
  Company Number: MX-AMGEN-KDC402057

PATIENT
  Age: 68 Year
  Sex: Male

DRUGS (1)
  1. DENOSUMAB [Suspect]
     Indication: PROSTATE CANCER
     Dosage: UNK UNK, QD
     Route: 058
     Dates: start: 20070223, end: 20091030

REACTIONS (1)
  - OSTEONECROSIS OF JAW [None]
